FAERS Safety Report 15258488 (Version 1)
Quarter: 2018Q3

REPORT INFORMATION
  Report Type: Report from Study
  Country: ES (occurrence: ES)
  Receive Date: 20180809
  Receipt Date: 20180809
  Transmission Date: 20181010
  Serious: Yes (Death, Life-Threatening, Hospitalization)
  Sender: FDA-Public Use
  Company Number: ES-TEVA-2018-ES-936706

PATIENT
  Age: 64 Year
  Sex: Female
  Weight: 67 kg

DRUGS (13)
  1. FUROSEMIDE. [Concomitant]
     Active Substance: FUROSEMIDE
     Indication: OLIGURIA
     Route: 065
     Dates: start: 20150811
  2. METAMIZOLE [Concomitant]
     Active Substance: METAMIZOLE
     Indication: BACK PAIN
     Route: 065
     Dates: start: 20150924
  3. SERTRALINE [Concomitant]
     Active Substance: SERTRALINE HYDROCHLORIDE
     Indication: DEPRESSION
     Route: 065
     Dates: start: 20150729
  4. CYCLOPHOSPHAMIDE. [Concomitant]
     Active Substance: CYCLOPHOSPHAMIDE
     Indication: PLASMA CELL MYELOMA
     Route: 065
     Dates: start: 20150511, end: 20151120
  5. VALACICLOVIR [Concomitant]
     Active Substance: VALACYCLOVIR HYDROCHLORIDE
     Indication: PROPHYLAXIS
     Route: 065
     Dates: start: 20150323
  6. OMEPRAZOLE. [Concomitant]
     Active Substance: OMEPRAZOLE
     Indication: GASTRITIS PROPHYLAXIS
     Route: 065
     Dates: start: 20130607
  7. LORMETAZEPAM [Concomitant]
     Active Substance: LORMETAZEPAM
     Indication: HYPNOTHERAPY
     Route: 065
     Dates: start: 20140324
  8. ASPIRIN. [Concomitant]
     Active Substance: ASPIRIN
     Indication: ANTICOAGULANT THERAPY
     Route: 065
     Dates: start: 20141203
  9. DEXAMETHASONE. [Suspect]
     Active Substance: DEXAMETHASONE
     Indication: PLASMA CELL MYELOMA
     Route: 065
     Dates: start: 20150511, end: 20151210
  10. POMALIDOMIDE [Suspect]
     Active Substance: POMALIDOMIDE
     Route: 048
     Dates: start: 20150520, end: 20150520
  11. POMALIDOMIDE [Suspect]
     Active Substance: POMALIDOMIDE
     Route: 048
     Dates: start: 20150511, end: 20150518
  12. POMALIDOMIDE [Suspect]
     Active Substance: POMALIDOMIDE
     Indication: PLASMA CELL MYELOMA
     Dosage: 3 MILLIGRAM
     Route: 048
     Dates: start: 20151110, end: 20151120
  13. POMALIDOMIDE [Suspect]
     Active Substance: POMALIDOMIDE
     Route: 048
     Dates: start: 20150529, end: 20150610

REACTIONS (6)
  - Febrile neutropenia [Fatal]
  - Plasma cell myeloma [Fatal]
  - Neutropenia [Fatal]
  - General physical health deterioration [Fatal]
  - Anaemia [Fatal]
  - Campylobacter gastroenteritis [Fatal]

NARRATIVE: CASE EVENT DATE: 20150515
